FAERS Safety Report 4532051-0 (Version None)
Quarter: 2004Q4

REPORT INFORMATION
  Report Type: 
  Country: None (occurrence: None)
  Receive Date: 20041220
  Receipt Date: 20041209
  Transmission Date: 20050328
  Serious: Yes (Other)
  Sender: FDA-Public Use
  Company Number: FI-GLAXOSMITHKLINE-B0362071A

PATIENT
  Age: 41 Year
  Sex: Female

DRUGS (2)
  1. LAMICTAL [Suspect]
     Indication: PROPHYLAXIS
     Dosage: 25MG UNKNOWN
     Route: 048
     Dates: start: 20041029, end: 20041203
  2. SEROQUEL [Concomitant]
     Indication: MANIA
     Dosage: 100MG UNKNOWN
     Route: 048
     Dates: start: 20030101

REACTIONS (4)
  - ADVERSE EVENT [None]
  - HALLUCINATION, VISUAL [None]
  - IRRITABILITY [None]
  - MALAISE [None]
